FAERS Safety Report 7174882-7 (Version None)
Quarter: 2010Q4

REPORT INFORMATION
  Report Type: 
  Country: None (occurrence: None)
  Receive Date: 20101219
  Receipt Date: 20101206
  Transmission Date: 20110411
  Serious: Yes (Hospitalization)
  Sender: FDA-Public Use
  Company Number: GB-MYLANLABS-2010S1022247

PATIENT
  Age: 82 Year
  Sex: Female

DRUGS (5)
  1. GABAPENTIN [Suspect]
     Indication: NEURALGIA
  2. ASPIRIN [Concomitant]
     Indication: THROMBOSIS PROPHYLAXIS
     Route: 048
     Dates: start: 20100929
  3. METFORMIN [Concomitant]
     Indication: TYPE 1 DIABETES MELLITUS
     Dates: start: 20100929
  4. OXYCODONE [Concomitant]
     Indication: PAIN
     Dates: start: 20100929
  5. PARACETAMOL [Concomitant]
     Indication: PAIN
     Dates: start: 20100929

REACTIONS (1)
  - NEUTROPHIL COUNT DECREASED [None]
